FAERS Safety Report 7334908-4 (Version None)
Quarter: 2011Q1

REPORT INFORMATION
  Report Type: 
  Country: None (occurrence: None)
  Receive Date: 20110307
  Receipt Date: 20110222
  Transmission Date: 20110831
  Serious: Yes (Death, Other)
  Sender: FDA-Public Use
  Company Number: JP-ROCHE-735068

PATIENT
  Sex: Male
  Weight: 60 kg

DRUGS (15)
  1. GRANISETRON HCL [Concomitant]
     Route: 041
  2. NORVASC [Concomitant]
     Dosage: DOSAGE WAS UNCERTAIN.
     Route: 048
  3. TOPOTECAN [Concomitant]
     Route: 041
  4. 5-FU [Concomitant]
     Route: 041
  5. 5-FU [Concomitant]
     Route: 040
  6. DECADRON [Concomitant]
     Route: 041
  7. OMEPRAL [Concomitant]
     Dosage: DOSAGE IS UNCERTAIN
     Route: 048
  8. GLUFAST [Concomitant]
     Dosage: DOSAGE IS UNCERTAIN
     Route: 048
  9. AVASTIN [Suspect]
     Indication: COLON CANCER METASTATIC
     Route: 041
     Dates: start: 20090807, end: 20100917
  10. PERDIPINE [Concomitant]
     Route: 042
  11. DIAZEPAM [Concomitant]
     Dosage: DOSAGE IS UNCERTAIN
     Route: 048
  12. LEVOFOLINATE [Concomitant]
     Route: 041
  13. SENNARIDE [Concomitant]
     Route: 048
  14. BLOPRESS [Concomitant]
     Dosage: DOSAGE IS UNCERTAIN
     Route: 048
  15. NITRODERM [Concomitant]
     Dosage: FORM REPORTED AS: TAPE
     Route: 062

REACTIONS (3)
  - CEREBRAL HAEMORRHAGE [None]
  - LOSS OF CONSCIOUSNESS [None]
  - LACUNAR INFARCTION [None]
